FAERS Safety Report 7347149-1 (Version None)
Quarter: 2011Q1

REPORT INFORMATION
  Report Type: 
  Country: None (occurrence: None)
  Receive Date: 20110303
  Receipt Date: 20110228
  Transmission Date: 20110831
  Serious: Yes (Other)
  Sender: FDA-Public Use
  Company Number: 20109699

PATIENT
  Age: 49 Year
  Sex: Male

DRUGS (1)
  1. LIORESAL [Suspect]
     Indication: MUSCLE SPASTICITY
     Dosage: SEE B5 MCG, DAILY, INTRATHECAL
     Route: 037

REACTIONS (4)
  - INFECTION [None]
  - MUSCLE SPASTICITY [None]
  - CONDITION AGGRAVATED [None]
  - IMPLANT SITE EFFUSION [None]
